FAERS Safety Report 9131098 (Version 1)
Quarter: 2013Q1

REPORT INFORMATION
  Report Type: Spontaneous
  Country: OM (occurrence: OM)
  Receive Date: 20130301
  Receipt Date: 20130301
  Transmission Date: 20140127
  Serious: Yes (Death)
  Sender: FDA-Public Use
  Company Number: OM-AMGEN-OMNSP2013012962

PATIENT
  Age: 26 Year
  Sex: Male

DRUGS (2)
  1. ENBREL [Suspect]
     Indication: DERMATITIS PSORIASIFORM
     Dosage: 50 MG, WEEKLY
     Route: 058
     Dates: start: 201211
  2. SALBUTAMOL [Concomitant]
     Indication: ASTHMA
     Dosage: UNK

REACTIONS (5)
  - Cardiac arrest [Fatal]
  - Hypotension [Fatal]
  - Loss of consciousness [Fatal]
  - Disorientation [Fatal]
  - Septic shock [Fatal]
